FAERS Safety Report 4772506-7 (Version None)
Quarter: 2005Q3

REPORT INFORMATION
  Report Type: 
  Country: None (occurrence: None)
  Receive Date: 20050916
  Receipt Date: 20050916
  Transmission Date: 20060218
  Serious: No
  Sender: FDA-Public Use
  Company Number: None

PATIENT
  Sex: Female
  Weight: 55.2 kg

DRUGS (3)
  1. ACCUTANE [Suspect]
     Indication: ACNE
  2. BIRTH CONTROL PATCH [Concomitant]
  3. VITAMIN E [Concomitant]

REACTIONS (5)
  - ABDOMINAL PAIN [None]
  - CRYING [None]
  - PERSONALITY CHANGE [None]
  - PIGMENTATION DISORDER [None]
  - STRESS [None]
